FAERS Safety Report 8162097-5 (Version None)
Quarter: 2012Q1

REPORT INFORMATION
  Report Type: 
  Country: None (occurrence: None)
  Receive Date: 20120224
  Receipt Date: 20120221
  Transmission Date: 20120608
  Serious: Yes (Death, Other)
  Sender: FDA-Public Use
  Company Number: AU-ABBOTT-11P-008-0723481-00

PATIENT
  Sex: Female

DRUGS (5)
  1. TRANDOLAPRIL [Suspect]
     Indication: PRODUCT USED FOR UNKNOWN INDICATION
     Dosage: 4MG DAILY
     Dates: end: 20100420
  2. TRIFLUOPERAZINE HYDROCHLORIDE [Suspect]
     Indication: PRODUCT USED FOR UNKNOWN INDICATION
  3. FOSAMAX [Concomitant]
     Indication: PRODUCT USED FOR UNKNOWN INDICATION
  4. LIPITOR [Concomitant]
     Indication: PRODUCT USED FOR UNKNOWN INDICATION
  5. FELODIPINE [Concomitant]
     Indication: PRODUCT USED FOR UNKNOWN INDICATION

REACTIONS (6)
  - OBSTRUCTIVE AIRWAYS DISORDER [None]
  - PULMONARY HAEMORRHAGE [None]
  - MYOCARDIAL INFARCTION [None]
  - DEATH [None]
  - PNEUMONIA [None]
  - SWOLLEN TONGUE [None]
